FAERS Safety Report 7367693-0 (Version None)
Quarter: 2011Q1

REPORT INFORMATION
  Report Type: 
  Country: None (occurrence: None)
  Receive Date: 20110307
  Receipt Date: 20110302
  Transmission Date: 20110831
  Serious: Yes (Death, Other)
  Sender: FDA-Public Use
  Company Number: 2011SP004217

PATIENT
  Age: 73 Year
  Sex: Male
  Weight: 50 kg

DRUGS (5)
  1. BRIDION [Concomitant]
  2. ESLAX (ROCURONIUM BROMIDE /01245702/) [Suspect]
     Indication: NEUROMUSCULAR BLOCKING THERAPY
     Dosage: 50 MG, ONCE, IV
     Route: 042
     Dates: start: 20110126, end: 20110126
  3. FENTANYL CITRATE [Suspect]
     Indication: PRODUCT USED FOR UNKNOWN INDICATION
     Dosage: 0.25 MG, INDRP, IV
     Route: 042
     Dates: start: 20110126, end: 20110131
  4. FENTANYL CITRATE [Suspect]
     Indication: PRODUCT USED FOR UNKNOWN INDICATION
     Dosage: 0.25 MG, INDRP, IV
     Route: 042
     Dates: start: 20110126
  5. DORMICUM (MIDAZOLAM/00634101) [Suspect]
     Indication: PRODUCT USED FOR UNKNOWN INDICATION
     Dosage: INDRP
     Dates: start: 20110126, end: 20110127

REACTIONS (3)
  - MULTI-ORGAN FAILURE [None]
  - NEUROMUSCULAR BLOCK PROLONGED [None]
  - NO REACTION ON PREVIOUS EXPOSURE TO DRUG [None]
